FAERS Safety Report 23015466 (Version 4)
Quarter: 2023Q4

REPORT INFORMATION
  Report Type: Spontaneous
  Country: US (occurrence: US)
  Receive Date: 20231002
  Receipt Date: 20231127
  Transmission Date: 20240110
  Serious: No
  Sender: FDA-Public Use
  Company Number: US-Blueprint Medicines Corporation-SP-US-2023-001492

PATIENT
  Age: 86 Year
  Sex: Male

DRUGS (3)
  1. AYVAKIT [Suspect]
     Active Substance: AVAPRITINIB
     Indication: Gastrointestinal stromal tumour
     Dosage: ON MONDAYS, TUESDAYS, WEDNESDAYS, AND THURSDAYS
     Route: 048
     Dates: start: 20221007
  2. AYVAKIT [Suspect]
     Active Substance: AVAPRITINIB
     Dosage: TAKING THE MEDICATIONS ON SATURDAY, SUNDAY, TUESDAY AND THURSDAY THROUGHOUT THE WEEK
     Route: 065
     Dates: start: 20221007
  3. AYVAKIT [Suspect]
     Active Substance: AVAPRITINIB
     Dosage: ON MONDAYS, TUESDAYS, WEDNESDAYS, AND THURSDAYS
     Route: 048
     Dates: start: 20221007

REACTIONS (5)
  - Eye disorder [Not Recovered/Not Resolved]
  - Dry eye [Not Recovered/Not Resolved]
  - Hypersomnia [Not Recovered/Not Resolved]
  - Adverse drug reaction [Not Recovered/Not Resolved]
  - Extra dose administered [Unknown]

NARRATIVE: CASE EVENT DATE: 20231106
